FAERS Safety Report 22130474 (Version 2)
Quarter: 2023Q2

REPORT INFORMATION
  Report Type: Spontaneous
  Country: AT (occurrence: None)
  Receive Date: 20230323
  Receipt Date: 20230407
  Transmission Date: 20230722
  Serious: Yes (Other)
  Sender: FDA-Public Use
  Company Number: AT-ROCHE-3311048

PATIENT
  Age: 74 Year
  Sex: Female

DRUGS (8)
  1. TECENTRIQ [Suspect]
     Active Substance: ATEZOLIZUMAB
     Indication: Small cell lung cancer
     Dosage: LAST, 23RD, ADMINISTRATION
     Route: 041
     Dates: start: 20181219, end: 20200821
  2. CARBOPLATIN [Suspect]
     Active Substance: CARBOPLATIN
     Indication: Small cell lung cancer
     Route: 065
  3. ETOPOSIDE [Suspect]
     Active Substance: ETOPOSIDE
     Indication: Small cell lung cancer
     Route: 065
  4. ASPIRIN [Concomitant]
     Active Substance: ASPIRIN
  5. METOPROLOL [Concomitant]
     Active Substance: METOPROLOL
  6. METAMIZOLE [Concomitant]
     Active Substance: METAMIZOLE
  7. PANTOPRAZOLE [Concomitant]
     Active Substance: PANTOPRAZOLE
  8. FUROSEMIDE [Concomitant]
     Active Substance: FUROSEMIDE

REACTIONS (2)
  - Diarrhoea [Recovered/Resolved]
  - Chronic obstructive pulmonary disease [Recovered/Resolved]

NARRATIVE: CASE EVENT DATE: 20200822
